FAERS Safety Report 5375058-6 (Version None)
Quarter: 2007Q2

REPORT INFORMATION
  Report Type: 
  Country: None (occurrence: None)
  Receive Date: 20070629
  Receipt Date: 20070426
  Transmission Date: 20071010
  Serious: No
  Sender: FDA-Public Use
  Company Number: A0648900A

PATIENT
  Age: 75 Year
  Sex: Female

DRUGS (2)
  1. AVANDARYL [Suspect]
     Dosage: 2MG PER DAY
     Route: 048
     Dates: start: 20060701
  2. INSULIN [Concomitant]

REACTIONS (1)
  - OEDEMA PERIPHERAL [None]
